FAERS Safety Report 7138430-X (Version None)
Quarter: 2010Q4

REPORT INFORMATION
  Report Type: 
  Country: None (occurrence: None)
  Receive Date: 20101206
  Receipt Date: 20101130
  Transmission Date: 20110411
  Serious: Yes (Hospitalization)
  Sender: FDA-Public Use
  Company Number: DE-CEPHALON-2010006143

PATIENT
  Sex: Female

DRUGS (5)
  1. TREANDA [Suspect]
     Indication: NON-HODGKIN'S LYMPHOMA
     Route: 041
     Dates: start: 20080526, end: 20080903
  2. TREANDA [Suspect]
     Route: 041
     Dates: start: 20080526, end: 20080903
  3. TREANDA [Suspect]
     Route: 041
     Dates: start: 20080526, end: 20080903
  4. RITUXIMAB [Suspect]
     Indication: NON-HODGKIN'S LYMPHOMA
     Dates: start: 20080526, end: 20080903
  5. RITUXIMAB [Suspect]
     Dates: start: 20080526, end: 20080903

REACTIONS (4)
  - DIARRHOEA [None]
  - GENERAL PHYSICAL HEALTH DETERIORATION [None]
  - NAUSEA [None]
  - WEIGHT DECREASED [None]
